FAERS Safety Report 5748995-8 (Version None)
Quarter: 2008Q2

REPORT INFORMATION
  Report Type: 
  Country: None (occurrence: None)
  Receive Date: 20080527
  Receipt Date: 20080522
  Transmission Date: 20081010
  Serious: Yes (Death)
  Sender: FDA-Public Use
  Company Number: FR-ELI_LILLY_AND_COMPANY-FR200802006828

PATIENT
  Age: 30 Year
  Sex: Female

DRUGS (4)
  1. ZYPREXA [Suspect]
     Indication: BRIEF PSYCHOTIC DISORDER WITH MARKED STRESSORS
     Dosage: 20 MG, DAILY (1/D)
     Route: 048
     Dates: start: 20080211, end: 20080222
  2. TRANXENE [Concomitant]
     Indication: BRIEF PSYCHOTIC DISORDER WITH MARKED STRESSORS
     Dosage: 80 MG, DAILY (1/D)
     Route: 048
     Dates: start: 20080210, end: 20080222
  3. LARGACTIL [Concomitant]
     Indication: BRIEF PSYCHOTIC DISORDER WITH MARKED STRESSORS
     Dosage: 150 MG, DAILY (1/D)
     Route: 048
     Dates: start: 20080213, end: 20080222
  4. URBANYL [Concomitant]
     Indication: EPILEPSY
     Dosage: 10 MG, DAILY (1/D)
     Route: 048
     Dates: start: 19880101, end: 20080222

REACTIONS (1)
  - DEATH [None]
